FAERS Safety Report 25994931 (Version 1)
Quarter: 2025Q4

REPORT INFORMATION
  Report Type: Spontaneous
  Country: US (occurrence: US)
  Receive Date: 20251104
  Receipt Date: 20251104
  Transmission Date: 20260118
  Serious: Yes (Hospitalization)
  Sender: ROCHE
  Company Number: US-ROCHE-10000420142

PATIENT

DRUGS (1)
  1. OCRELIZUMAB [Suspect]
     Active Substance: OCRELIZUMAB
     Indication: Relapsing-remitting multiple sclerosis
     Dosage: OCREVUS LAST DOSE GIVEN ON 25-AUG-2025
     Route: 065
     Dates: start: 20190308

REACTIONS (3)
  - Neutropenia [Unknown]
  - Labyrinthitis [Unknown]
  - Otitis externa [Unknown]
